FAERS Safety Report 23867841 (Version 1)
Quarter: 2024Q2

REPORT INFORMATION
  Report Type: Spontaneous
  Country: FR (occurrence: None)
  Receive Date: 20240517
  Receipt Date: 20240517
  Transmission Date: 20240716
  Serious: Yes (Hospitalization)
  Sender: FDA-Public Use
  Company Number: 2024A105476

PATIENT
  Age: 87 Year
  Sex: Male
  Weight: 68 kg

DRUGS (16)
  1. OMEPRAZOLE [Interacting]
     Active Substance: DONEPEZIL HYDROCHLORIDE\OMEPRAZOLE\OMEPRAZOLE MAGNESIUM
     Indication: Product used for unknown indication
     Route: 048
     Dates: end: 202404
  2. CLOPIDOGREL [Interacting]
     Active Substance: CLOPIDOGREL BISULFATE
     Indication: Thromboangiitis obliterans
     Dosage: 75 1 TABLET IN THE EVENING
     Route: 048
     Dates: end: 20240417
  3. ATORVASTATIN [Concomitant]
     Active Substance: ATORVASTATIN
     Dosage: 20/1 TABLET IN THE EVENING
     Route: 048
  4. FUROSEMIDE [Concomitant]
     Active Substance: FUROSEMIDE
     Dosage: 1/4 TABLET IN THE MORNING
     Route: 048
  5. TAMSULOSIN HYDROCHLORIDE [Concomitant]
     Active Substance: TAMSULOSIN HYDROCHLORIDE
     Dosage: 1 TABLET IN THE EVENING
     Route: 048
  6. PENTASA [Concomitant]
     Active Substance: MESALAMINE
     Dosage: 1 G/100 ML/1G 1 SUPPOSITORY IF NECESSARY1.0DF INTERMITTENT
     Route: 054
  7. DEXERYL [Concomitant]
  8. DIMETHICONE [Concomitant]
     Active Substance: DIMETHICONE
  9. MACROGOL 600 [Concomitant]
  10. TROLAMINE [Concomitant]
     Active Substance: TROLAMINE
  11. ISOHEXADECANE [Concomitant]
  12. POLYSORBATE 20 [Concomitant]
     Active Substance: POLYSORBATE 20
  13. PENTYLENE GLYCOL [Concomitant]
  14. ETHYLHEXYLGLYCERIN [Concomitant]
  15. CARBOMER [Concomitant]
     Active Substance: CARBOMER
  16. STEARIC ACID [Concomitant]
     Active Substance: STEARIC ACID

REACTIONS (2)
  - Drug interaction [Recovered/Resolved]
  - Cerebrovascular accident [Recovered/Resolved]

NARRATIVE: CASE EVENT DATE: 20211107
